FAERS Safety Report 5368652-X (Version None)
Quarter: 2007Q2

REPORT INFORMATION
  Report Type: 
  Country: None (occurrence: None)
  Receive Date: 20070620
  Receipt Date: 20060622
  Transmission Date: 20071010
  Serious: No
  Sender: FDA-Public Use
  Company Number: 002#4#2006-00210

PATIENT
  Age: 64 Year
  Sex: Male
  Weight: 81.1939 kg

DRUGS (11)
  1. UNIVASC [Suspect]
     Indication: HYPERTENSION
     Dosage: 15MG, 1 IN 1 D, ORAL
     Route: 048
  2. GLYBURIDE [Concomitant]
  3. ROSIGLITAZONE MALEATE [Concomitant]
  4. AZATHIOPRINE [Concomitant]
  5. WARFARIN SODIUM [Concomitant]
  6. DIGOXIN [Concomitant]
  7. FOLIC ACID [Concomitant]
  8. FUROSEMIDE [Concomitant]
  9. CLONIDINE [Concomitant]
  10. DILTIAZEM [Concomitant]
  11. VALSARTAN [Concomitant]

REACTIONS (7)
  - BLOOD PRESSURE INADEQUATELY CONTROLLED [None]
  - DRUG INEFFECTIVE [None]
  - HORMONE LEVEL ABNORMAL [None]
  - HYPERTENSION [None]
  - INFLAMMATION [None]
  - PHARMACEUTICAL PRODUCT COMPLAINT [None]
  - RENAL DISORDER [None]
